FAERS Safety Report 8420769-9 (Version None)
Quarter: 2012Q2

REPORT INFORMATION
  Report Type: 
  Country: None (occurrence: None)
  Receive Date: 20120608
  Receipt Date: 20120602
  Transmission Date: 20120825
  Serious: No
  Sender: FDA-Public Use
  Company Number: US-PFIZER INC-2012092865

PATIENT
  Sex: Female
  Weight: 60.317 kg

DRUGS (2)
  1. IBUPROFEN (ADVIL) [Suspect]
     Indication: HEADACHE
     Dosage: 200 MG, AS NEEDED
     Route: 048
     Dates: start: 20120212, end: 20120410
  2. IBUPROFEN (ADVIL) [Suspect]
     Indication: PAIN

REACTIONS (2)
  - HEADACHE [None]
  - DRUG INEFFECTIVE [None]
